FAERS Safety Report 8985464 (Version 7)
Quarter: 2016Q2

REPORT INFORMATION
  Report Type: Spontaneous
  Country: US (occurrence: US)
  Receive Date: 20121226
  Receipt Date: 20160408
  Transmission Date: 20160815
  Serious: Yes (Disabling, Other)
  Sender: FDA-Public Use
  Company Number: US-009507513-1212USA009158

PATIENT
  Sex: Male

DRUGS (3)
  1. FINASTERIDE. [Suspect]
     Active Substance: FINASTERIDE
     Indication: ANDROGENETIC ALOPECIA
     Dosage: 1/4 OF 5 MG, UNKNOWN
     Route: 065
     Dates: start: 20101129, end: 201207
  2. FINASTERIDE. [Suspect]
     Active Substance: FINASTERIDE
     Indication: ALOPECIA
     Dosage: 5 MG, UNKNOWN
     Route: 048
     Dates: start: 20111019, end: 20120429
  3. PROPECIA [Suspect]
     Active Substance: FINASTERIDE
     Indication: ANDROGENETIC ALOPECIA
     Dosage: 1 MG, UNKNOWN
     Route: 048
     Dates: start: 201008, end: 201011

REACTIONS (28)
  - Cognitive disorder [Not Recovered/Not Resolved]
  - Blood cortisol decreased [Unknown]
  - Fatigue [Not Recovered/Not Resolved]
  - Depression [Not Recovered/Not Resolved]
  - Malaise [Unknown]
  - Testicular failure [Unknown]
  - Vitamin B complex deficiency [Unknown]
  - Varicocele [Unknown]
  - Semen analysis abnormal [Not Recovered/Not Resolved]
  - Foot deformity [Unknown]
  - Suture insertion [Unknown]
  - Drug administration error [Unknown]
  - Semen volume decreased [Not Recovered/Not Resolved]
  - Intervertebral disc protrusion [Unknown]
  - Hypogonadism [Not Recovered/Not Resolved]
  - Vitamin D deficiency [Unknown]
  - Anxiety [Not Recovered/Not Resolved]
  - Face injury [Unknown]
  - Spermatocele [Unknown]
  - Suicidal ideation [Not Recovered/Not Resolved]
  - Lethargy [Not Recovered/Not Resolved]
  - Testicular microlithiasis [Unknown]
  - White blood cells semen positive [Unknown]
  - Erectile dysfunction [Not Recovered/Not Resolved]
  - Libido decreased [Not Recovered/Not Resolved]
  - Wrong technique in product usage process [Unknown]
  - Testicular cyst [Unknown]
  - Sleep disorder due to general medical condition, insomnia type [Unknown]

NARRATIVE: CASE EVENT DATE: 201011
